FAERS Safety Report 7104656-4 (Version None)
Quarter: 2010Q4

REPORT INFORMATION
  Report Type: 
  Country: None (occurrence: None)
  Receive Date: 20101116
  Receipt Date: 20101103
  Transmission Date: 20110411
  Serious: No
  Sender: FDA-Public Use
  Company Number: US-JNJFOC-20101102328

PATIENT
  Sex: Female
  Weight: 90.72 kg

DRUGS (3)
  1. FENTANYL [Suspect]
     Indication: PAIN
     Route: 062
  2. FENTANYL CITRATE [Suspect]
     Indication: PAIN
     Route: 062
  3. DILAUDID [Concomitant]
     Indication: BREAKTHROUGH PAIN
     Route: 048

REACTIONS (2)
  - DRUG ADMINISTERED AT INAPPROPRIATE SITE [None]
  - WRONG TECHNIQUE IN DRUG USAGE PROCESS [None]
